FAERS Safety Report 4895705-2 (Version None)
Quarter: 2006Q1

REPORT INFORMATION
  Report Type: 
  Country: None (occurrence: None)
  Receive Date: 20060125
  Receipt Date: 20060106
  Transmission Date: 20060701
  Serious: Yes (Hospitalization)
  Sender: FDA-Public Use
  Company Number: TRP_0650_2005

PATIENT
  Age: 48 Year
  Sex: Female

DRUGS (4)
  1. RIBASPHERE [Suspect]
     Indication: HEPATITIS C
     Dosage: 1200 MG QDAY PO
     Route: 048
     Dates: start: 20050705, end: 20051025
  2. INFERGEN [Suspect]
     Indication: HEPATITIS C
     Dosage: 15 MCG QDAY SC
     Route: 058
     Dates: start: 20050705, end: 20051025
  3. RIBASPHERE [Suspect]
     Indication: HEPATITIS C
     Dosage: 1200 MG QDAY PO
     Route: 048
     Dates: start: 20051028
  4. INFERGEN [Suspect]
     Indication: HEPATITIS C
     Dosage: 15 MCG QDAY SC
     Route: 058
     Dates: start: 20051028

REACTIONS (3)
  - BLOOD POTASSIUM DECREASED [None]
  - CHEST PAIN [None]
  - DYSPNOEA [None]
